FAERS Safety Report 15122428 (Version 1)
Quarter: 2018Q3

REPORT INFORMATION
  Report Type: Spontaneous
  Country: US (occurrence: US)
  Receive Date: 20180709
  Receipt Date: 20180709
  Transmission Date: 20181010
  Serious: No
  Sender: FDA-Public Use
  Company Number: US-JUBILANT CADISTA PHARMACEUTICALS-2018JUB00097

PATIENT
  Sex: Female

DRUGS (2)
  1. DONEPEZIL HYDROCHLORIDE. [Suspect]
     Active Substance: DONEPEZIL HYDROCHLORIDE
     Dosage: 2 TABLETS, 1X/DAY
     Route: 048
  2. DONEPEZIL HYDROCHLORIDE. [Suspect]
     Active Substance: DONEPEZIL HYDROCHLORIDE
     Indication: CEREBRAL DISORDER
     Dosage: 1 TABLETS, 1X/DAY
     Route: 048

REACTIONS (2)
  - Intentional product misuse [Recovered/Resolved]
  - Drug ineffective [Unknown]
